FAERS Safety Report 9346940 (Version 1)
Quarter: 2013Q2

REPORT INFORMATION
  Report Type: Spontaneous
  Country: CN (occurrence: CN)
  Receive Date: 20130613
  Receipt Date: 20130613
  Transmission Date: 20140414
  Serious: No
  Sender: FDA-Public Use
  Company Number: CN-ASTRAZENECA-2013SE39749

PATIENT
  Age: 23416 Day
  Sex: Female
  Weight: 63 kg

DRUGS (6)
  1. BUDESONIDE FORMOTEROL [Suspect]
     Indication: WHEEZING
     Dosage: ONE INHALATION TWO TIMES DAILY FOR 14 DAYS.
     Route: 055
     Dates: start: 20120406, end: 20120407
  2. THEOPHYLLINE [Suspect]
     Indication: WHEEZING
     Route: 048
     Dates: start: 20120406, end: 20120406
  3. MONTELUKAST SODIUM [Concomitant]
     Indication: WHEEZING
     Route: 048
     Dates: start: 20120406, end: 20120406
  4. MONTELUKAST SODIUM [Concomitant]
     Indication: HYPERSENSITIVITY
     Route: 048
     Dates: start: 20120406, end: 20120406
  5. MONTELUKAST SODIUM [Concomitant]
     Indication: WHEEZING
     Route: 048
     Dates: start: 20120406, end: 20120406
  6. KETOTIFEN FUMARATE [Concomitant]
     Indication: HYPERSENSITIVITY
     Route: 048
     Dates: start: 20120406, end: 20120406

REACTIONS (6)
  - Asthenia [Recovered/Resolved]
  - Pallor [Recovered/Resolved]
  - Malaise [Unknown]
  - Palpitations [Recovered/Resolved]
  - Insomnia [Recovered/Resolved]
  - Tremor [Unknown]
